FAERS Safety Report 11746280 (Version 1)
Quarter: 2015Q4

REPORT INFORMATION
  Report Type: Spontaneous
  Country: VN (occurrence: VN)
  Receive Date: 20151117
  Receipt Date: 20151117
  Transmission Date: 20160304
  Serious: Yes (Hospitalization)
  Sender: FDA-Public Use
  Company Number: VN-B. BRAUN MEDICAL INC.-1044273

PATIENT
  Sex: Female
  Weight: 48 kg

DRUGS (5)
  1. BIPHENYL DIMETHYL DICARBOXYLATE [Concomitant]
     Dates: start: 20150928, end: 20150928
  2. LACTATED RINGERS [Suspect]
     Active Substance: CALCIUM CHLORIDE\POTASSIUM CHLORIDE\SODIUM CHLORIDE\SODIUM LACTATE
     Route: 042
     Dates: start: 20150928
  3. ACETAMINOPHEN. [Concomitant]
     Active Substance: ACETAMINOPHEN
     Dates: start: 20150928, end: 20150928
  4. VITAMIN C [Concomitant]
     Active Substance: ASCORBIC ACID
     Dates: start: 20150928, end: 20150928
  5. TPN [Concomitant]
     Active Substance: AMINO ACIDS\DEXTROSE\ELECTROLYTES NOS\SOYBEAN OIL
     Dates: start: 20150928, end: 20150928

REACTIONS (6)
  - Urticaria [None]
  - Pyrexia [None]
  - Fatigue [None]
  - Hypotension [None]
  - Chills [None]
  - Tachycardia [None]
